FAERS Safety Report 19997664 (Version 2)
Quarter: 2021Q4

REPORT INFORMATION
  Report Type: Spontaneous
  Country: FR (occurrence: FR)
  Receive Date: 20211026
  Receipt Date: 20211029
  Transmission Date: 20220303
  Serious: Yes (Hospitalization)
  Sender: FDA-Public Use
  Company Number: FR-CELGENE-FRA-20211005360

PATIENT
  Age: 65 Year
  Sex: Female
  Weight: 64 kg

DRUGS (43)
  1. REVLIMID [Suspect]
     Active Substance: LENALIDOMIDE
     Indication: Primary mediastinal large B-cell lymphoma recurrent
     Route: 048
     Dates: start: 20201111, end: 20201111
  2. YESCARTA [Suspect]
     Active Substance: AXICABTAGENE CILOLEUCEL
     Indication: Primary mediastinal large B-cell lymphoma recurrent
     Route: 042
     Dates: start: 20201028, end: 20201028
  3. CYCLOPHOSPHAMIDE [Concomitant]
     Active Substance: CYCLOPHOSPHAMIDE
     Indication: Bone marrow conditioning regimen
     Route: 065
  4. TRAMADOL [Concomitant]
     Active Substance: TRAMADOL
     Indication: Pain
     Route: 065
  5. MOVICOL [Concomitant]
     Active Substance: POLYETHYLENE GLYCOL 3350\POTASSIUM CHLORIDE\SODIUM BICARBONATE\SODIUM CHLORIDE
     Indication: Gastrointestinal motility disorder
     Route: 065
  6. TRANXENE [Concomitant]
     Active Substance: CLORAZEPATE DIPOTASSIUM
     Indication: Anxiety
     Route: 065
  7. FLUDARABINE PHOSPHATE [Concomitant]
     Active Substance: FLUDARABINE PHOSPHATE
     Indication: Bone marrow conditioning regimen
     Route: 065
  8. VALACYCLOVIR HYDROCHLORIDE [Concomitant]
     Active Substance: VALACYCLOVIR HYDROCHLORIDE
     Indication: Opportunistic infection prophylaxis
     Route: 065
  9. ATOVAQUONE [Concomitant]
     Active Substance: ATOVAQUONE
     Indication: Antifungal prophylaxis
     Route: 065
  10. soduim bicarbonate [Concomitant]
     Indication: Gastrointestinal motility disorder
     Route: 065
  11. COPOLYMER OF ACRYLATES AND CATIONIC METHACRYLATES [Concomitant]
     Indication: Product used for unknown indication
     Route: 065
  12. POTASSIUM POLYMETHACRYLATE [Concomitant]
     Indication: Product used for unknown indication
     Route: 065
  13. CLORAZEPATE DIPOTASSIUM [Concomitant]
     Active Substance: CLORAZEPATE DIPOTASSIUM
     Indication: Product used for unknown indication
     Route: 065
  14. DIETHYL (PHTHALATE) [Concomitant]
     Indication: Product used for unknown indication
     Route: 065
  15. MANNITOL [Concomitant]
     Active Substance: MANNITOL
     Indication: Product used for unknown indication
     Route: 065
  16. ERYTHROSINE (ALUMINUM LACQUER) [Concomitant]
     Indication: Product used for unknown indication
     Route: 065
  17. black iron [Concomitant]
     Indication: Product used for unknown indication
     Route: 065
  18. GELATIN ((MAMMAL/COW)) [Concomitant]
     Indication: Product used for unknown indication
     Route: 065
  19. Indigotine [Concomitant]
     Indication: Product used for unknown indication
     Route: 065
  20. LACTOSE MONOHYDRATE [Concomitant]
     Active Substance: LACTOSE MONOHYDRATE
     Indication: Product used for unknown indication
     Route: 065
  21. ANHYDROUS LACTOSE [Concomitant]
     Indication: Product used for unknown indication
     Route: 065
  22. MAGNESIUM (STEARATE) [Concomitant]
     Indication: Product used for unknown indication
     Route: 065
  23. MAGNESIUM OXIDE [Concomitant]
     Active Substance: MAGNESIUM OXIDE
     Indication: Product used for unknown indication
     Route: 065
  24. POTASSIUM (CHLORIDE) [Concomitant]
     Indication: Product used for unknown indication
     Route: 065
  25. POTASSIUM PHOSPHATE, DIBASIC [Concomitant]
     Active Substance: POTASSIUM PHOSPHATE, DIBASIC
     Indication: Product used for unknown indication
     Route: 065
  26. POTASSIUM CARBONATE [Concomitant]
     Active Substance: POTASSIUM CARBONATE
     Indication: Product used for unknown indication
     Route: 065
  27. POTASSIUM PHOSPHATE, MONOBASIC [Concomitant]
     Active Substance: POTASSIUM PHOSPHATE, MONOBASIC
     Indication: Product used for unknown indication
     Route: 065
  28. HYDROGENATED CASTOR (OIL) [Concomitant]
     Indication: Product used for unknown indication
     Route: 065
  29. COLLOIDAL ANHYDROUS SILICA [Concomitant]
     Indication: Product used for unknown indication
     Route: 065
  30. MONOSODIUM SULFITE [Concomitant]
     Indication: Product used for unknown indication
     Route: 065
  31. SACCHARIN SODIUM [Concomitant]
     Active Substance: SACCHARIN SODIUM DIHYDRATE
     Indication: Antifungal prophylaxis
     Route: 065
  32. TALC [Concomitant]
     Active Substance: TALC
     Indication: Product used for unknown indication
     Route: 065
  33. TITANIUM DIOXIDE [Concomitant]
     Active Substance: TITANIUM DIOXIDE
     Indication: Product used for unknown indication
     Route: 065
  34. BENZYL ALCOHOL [Concomitant]
     Active Substance: BENZYL ALCOHOL
     Indication: Product used for unknown indication
     Route: 065
  35. SODIUM CARBOXYMETHYL STARCH [Concomitant]
     Indication: Product used for unknown indication
     Route: 065
  36. CELLULOSE, MICROCRYSTALLINE [Concomitant]
     Active Substance: CELLULOSE, MICROCRYSTALLINE
     Indication: Product used for unknown indication
     Route: 065
  37. XANTHAN GUM [Concomitant]
     Active Substance: XANTHAN GUM
     Indication: Product used for unknown indication
     Route: 065
  38. HYPROMELLOSES [Concomitant]
     Active Substance: HYPROMELLOSES
     Indication: Product used for unknown indication
     Route: 065
  39. HYDROXYPROPYL CELLULOSE [Concomitant]
     Active Substance: HYDROXYPROPYL CELLULOSE
     Indication: Product used for unknown indication
     Route: 065
  40. POLYETHYLENE GLYCOL 400 [Concomitant]
     Active Substance: POLYETHYLENE GLYCOL 400
     Indication: Product used for unknown indication
     Route: 065
  41. PEG 800 [Concomitant]
     Indication: Product used for unknown indication
     Route: 065
  42. POLOXAMER 188 [Concomitant]
     Active Substance: POLOXAMER 188
     Indication: Product used for unknown indication
     Route: 065
  43. PVP K-30 [Concomitant]
     Indication: Product used for unknown indication
     Route: 065

REACTIONS (4)
  - Immune effector cell-associated neurotoxicity syndrome [Recovered/Resolved]
  - Thrombocytopenia [Recovered/Resolved]
  - Cytokine release syndrome [Recovered/Resolved]
  - Leukopenia [Recovered/Resolved]

NARRATIVE: CASE EVENT DATE: 20200101
